FAERS Safety Report 14214953 (Version 1)
Quarter: 2017Q4

REPORT INFORMATION
  Report Type: Spontaneous
  Country: US (occurrence: US)
  Receive Date: 20171122
  Receipt Date: 20171122
  Transmission Date: 20180321
  Serious: No
  Sender: FDA-Public Use
  Company Number: US-ROCHE-1919090

PATIENT
  Age: 55 Year
  Sex: Female
  Weight: 87.17 kg

DRUGS (2)
  1. HERCEPTIN [Suspect]
     Active Substance: TRASTUZUMAB
     Indication: BREAST CANCER METASTATIC
     Route: 065
     Dates: start: 2009
  2. HERCEPTIN [Suspect]
     Active Substance: TRASTUZUMAB
     Indication: BREAST CANCER METASTATIC
     Route: 042
     Dates: start: 20120724

REACTIONS (5)
  - Weight decreased [Unknown]
  - Weight increased [Unknown]
  - Aphthous ulcer [Unknown]
  - Mouth ulceration [Recovered/Resolved with Sequelae]
  - Nasal ulcer [Unknown]

NARRATIVE: CASE EVENT DATE: 201307
